FAERS Safety Report 11877886 (Version 2)
Quarter: 2016Q1

REPORT INFORMATION
  Report Type: Spontaneous
  Country: MX (occurrence: MX)
  Receive Date: 20151230
  Receipt Date: 20160113
  Transmission Date: 20160526
  Serious: Yes (Death)
  Sender: FDA-Public Use
  Company Number: MX-HORIZON-ACT-0233-2015

PATIENT
  Age: 13 Year
  Sex: Male
  Weight: 49.7 kg

DRUGS (3)
  1. IMUKIN [Suspect]
     Active Substance: INTERFERON GAMMA
     Indication: CHRONIC GRANULOMATOUS DISEASE
     Dosage: 173.9 ?G
     Route: 058
     Dates: start: 20110114, end: 20151205
  2. FLUCONAZOLE. [Concomitant]
     Active Substance: FLUCONAZOLE
     Indication: PROPHYLAXIS
     Dosage: 5 MG/KG, 1X/DAY
     Route: 048
     Dates: start: 20110101
  3. TRIMETHOPRIM-SULFAMETHOXAZOLE [Concomitant]
     Active Substance: SULFAMETHOXAZOLE\TRIMETHOPRIM
     Indication: PROPHYLAXIS
     Dosage: 5 MG/KG, 1X/DAY
     Route: 048
     Dates: start: 20110101

REACTIONS (2)
  - Pneumonia [Fatal]
  - Injection site pain [Recovered/Resolved]

NARRATIVE: CASE EVENT DATE: 20140828
